FAERS Safety Report 4865091-2 (Version None)
Quarter: 2005Q4

REPORT INFORMATION
  Report Type: 
  Country: None (occurrence: None)
  Receive Date: 20051220
  Receipt Date: 20051220
  Transmission Date: 20060501
  Serious: Yes (Hospitalization, Other)
  Sender: FDA-Public Use
  Company Number: None

PATIENT
  Sex: Female
  Weight: 84.5 kg

DRUGS (6)
  1. DOXORUBICIN [Suspect]
     Indication: ENDOMETRIAL CANCER
     Dosage: SEE IMAGE
     Route: 042
     Dates: start: 20051201, end: 20051201
  2. CISPLATIN [Suspect]
     Dosage: SEE IMAGE
     Dates: start: 20051201, end: 20051201
  3. PACLITAXEL [Suspect]
     Dosage: SEE IMAGE
     Dates: start: 20051202, end: 20051202
  4. PACLITAXEL [Suspect]
     Dosage: SEE IMAGE
     Dates: start: 20051201
  5. IMODIUM [Concomitant]
  6. OXYCODONE AND ACETAMINOPHEN [Concomitant]

REACTIONS (13)
  - ABDOMINAL PAIN [None]
  - ANORECTAL DISORDER [None]
  - CONSTIPATION [None]
  - DIARRHOEA [None]
  - GASTROINTESTINAL DISORDER [None]
  - GASTROINTESTINAL NECROSIS [None]
  - GASTROINTESTINAL OEDEMA [None]
  - HYPOTENSION [None]
  - INDURATION [None]
  - LARGE INTESTINE PERFORATION [None]
  - NECROSIS [None]
  - SEPTIC SHOCK [None]
  - TACHYCARDIA [None]
